FAERS Safety Report 14168827 (Version 12)
Quarter: 2018Q4

REPORT INFORMATION
  Report Type: Report from Study
  Country: CO (occurrence: CO)
  Receive Date: 20171107
  Receipt Date: 20181205
  Transmission Date: 20190204
  Serious: Yes (Other)
  Sender: FDA-Public Use
  Company Number: PHHY2017CO161464

PATIENT
  Sex: Female
  Weight: 70 kg

DRUGS (9)
  1. LOSARTAN. [Suspect]
     Active Substance: LOSARTAN
     Indication: BLOOD PRESSURE INCREASED
  2. FORT E [Concomitant]
     Indication: PRODUCT USED FOR UNKNOWN INDICATION
     Route: 065
  3. LOSARTAN. [Suspect]
     Active Substance: LOSARTAN
     Indication: TENSION
     Dosage: 50 MG, QD
     Route: 048
  4. VITAMIIN C [Concomitant]
     Active Substance: ASCORBIC ACID
     Indication: PRODUCT USED FOR UNKNOWN INDICATION
     Dosage: UNK
     Route: 065
  5. REVOLADE [Suspect]
     Active Substance: ELTROMBOPAG
     Indication: THROMBOCYTOPENIC PURPURA
     Dosage: 25 MG, QD
     Route: 048
     Dates: start: 20170724
  6. SILYMARIN [Concomitant]
     Active Substance: DIETARY SUPPLEMENT\HERBALS\MILK THISTLE
     Indication: PRODUCT USED FOR UNKNOWN INDICATION
     Dosage: 150 MG, UNK
     Route: 048
  7. ALSUCRAL [Concomitant]
     Indication: NAUSEA
     Dosage: UNK
     Route: 065
  8. REVOLADE [Suspect]
     Active Substance: ELTROMBOPAG
     Dosage: 25 MG, QOD
     Route: 048
  9. REVOLADE [Suspect]
     Active Substance: ELTROMBOPAG
     Dosage: 25 MG, QD
     Route: 048
     Dates: start: 20170906

REACTIONS (13)
  - Arthropathy [Unknown]
  - Platelet count decreased [Unknown]
  - Cartilage injury [Unknown]
  - Influenza [Recovered/Resolved]
  - Malaise [Unknown]
  - Gait disturbance [Unknown]
  - Headache [Unknown]
  - Pain [Unknown]
  - Secretion discharge [Unknown]
  - Hypothyroidism [Unknown]
  - Tooth injury [Unknown]
  - Nausea [Unknown]
  - Inappropriate schedule of product administration [Unknown]
